FAERS Safety Report 12627457 (Version 1)
Quarter: 2016Q3

REPORT INFORMATION
  Report Type: Spontaneous
  Country: US (occurrence: US)
  Receive Date: 20160805
  Receipt Date: 20160805
  Transmission Date: 20161109
  Serious: Yes (Death, Hospitalization, Other)
  Sender: FDA-Public Use
  Company Number: US-TEVA-680759USA

PATIENT
  Age: 86 Year
  Sex: Male

DRUGS (7)
  1. CARVEDILOL. [Suspect]
     Active Substance: CARVEDILOL
     Dates: end: 20160212
  2. DIGOXIN. [Suspect]
     Active Substance: DIGOXIN
     Dates: end: 20160212
  3. SPIRIVA [Suspect]
     Active Substance: TIOTROPIUM BROMIDE MONOHYDRATE
     Dates: end: 20160212
  4. PRAVASTATIN. [Suspect]
     Active Substance: PRAVASTATIN
     Dates: end: 20160212
  5. LINZESS [Suspect]
     Active Substance: LINACLOTIDE
     Indication: CONSTIPATION
     Route: 048
     Dates: start: 2015, end: 20160212
  6. FUROSEMIDE. [Suspect]
     Active Substance: FUROSEMIDE
     Dates: end: 20160212
  7. COUMADIN [Suspect]
     Active Substance: WARFARIN SODIUM
     Dates: end: 20160212

REACTIONS (2)
  - Aneurysm [Unknown]
  - Death [Fatal]

NARRATIVE: CASE EVENT DATE: 20160104
